FAERS Safety Report 19748664 (Version 1)
Quarter: 2021Q3

REPORT INFORMATION
  Report Type: Report from Study
  Country: None (occurrence: US)
  Receive Date: 20210826
  Receipt Date: 20210826
  Transmission Date: 20211014
  Serious: Yes (Hospitalization)
  Sender: FDA-Public Use
  Company Number: US-ABBVIE-21K-163-4002918-00

PATIENT
  Sex: Female

DRUGS (4)
  1. HUMIRA [Suspect]
     Active Substance: ADALIMUMAB
     Indication: COLITIS ULCERATIVE
     Route: 058
     Dates: start: 2021
  2. HUMIRA [Suspect]
     Active Substance: ADALIMUMAB
     Indication: COLITIS ULCERATIVE
     Dosage: DAY 1
     Route: 058
     Dates: start: 20210716, end: 20210716
  3. BUDESONIDE. [Concomitant]
     Active Substance: BUDESONIDE
     Indication: PRODUCT USED FOR UNKNOWN INDICATION
  4. HUMIRA [Suspect]
     Active Substance: ADALIMUMAB
     Dosage: DAY 15
     Route: 058
     Dates: start: 2021, end: 2021

REACTIONS (20)
  - Abdominal distension [Recovering/Resolving]
  - Nausea [Unknown]
  - Malaise [Unknown]
  - Decreased appetite [Unknown]
  - Defaecation urgency [Unknown]
  - Flatulence [Not Recovered/Not Resolved]
  - Dizziness [Unknown]
  - Frequent bowel movements [Recovering/Resolving]
  - Arthralgia [Unknown]
  - Blood iron decreased [Unknown]
  - Constipation [Unknown]
  - Abdominal pain [Unknown]
  - Muscle spasms [Recovering/Resolving]
  - Diarrhoea [Unknown]
  - Mucous stools [Unknown]
  - Asthenia [Unknown]
  - Burning sensation [Unknown]
  - Haematochezia [Unknown]
  - Proctalgia [Unknown]
  - Insomnia [Unknown]

NARRATIVE: CASE EVENT DATE: 2021
